FAERS Safety Report 17036808 (Version 6)
Quarter: 2020Q4

REPORT INFORMATION
  Report Type: Spontaneous
  Country: US (occurrence: US)
  Receive Date: 20191115
  Receipt Date: 20201104
  Transmission Date: 20210113
  Serious: Yes (Hospitalization, Other)
  Sender: FDA-Public Use
  Company Number: US-UCBSA-2019028163

PATIENT
  Age: 51 Year
  Sex: Female

DRUGS (1)
  1. VIMPAT [Suspect]
     Active Substance: LACOSAMIDE
     Indication: EPILEPSY
     Dosage: 150MG
     Route: 048
     Dates: start: 201106

REACTIONS (7)
  - Seizure cluster [Unknown]
  - Depression [Not Recovered/Not Resolved]
  - Simple partial seizures [Unknown]
  - Seizure [Unknown]
  - Restlessness [Not Recovered/Not Resolved]
  - SARS-CoV-2 test negative [Unknown]
  - Influenza like illness [Recovered/Resolved]

NARRATIVE: CASE EVENT DATE: 20191115
